FAERS Safety Report 15585358 (Version 2)
Quarter: 2018Q4

REPORT INFORMATION
  Report Type: Spontaneous
  Country: NL (occurrence: NL)
  Receive Date: 20181105
  Receipt Date: 20181109
  Transmission Date: 20190205
  Serious: Yes (Other)
  Sender: FDA-Public Use
  Company Number: NL-ASTRAZENECA-2018SF43942

PATIENT
  Age: 44 Year
  Sex: Female

DRUGS (7)
  1. CETOMACROGOL 1000 [Concomitant]
  2. COLECALCIFEROL [Concomitant]
     Active Substance: CHOLECALCIFEROL
     Dosage: 400 IU
  3. ESTRADIOL/DYDROGESTERON [Concomitant]
     Dosage: 1/10/MG
  4. QUETIAPINE. [Suspect]
     Active Substance: QUETIAPINE
     Indication: MOOD SWINGS
     Route: 048
  5. QUETIAPINE. [Suspect]
     Active Substance: QUETIAPINE
     Indication: ABNORMAL BEHAVIOUR
     Route: 048
  6. CALCIUM CARBONATE. [Concomitant]
     Active Substance: CALCIUM CARBONATE
  7. ESTRADIOL/DYDROGESTERON [Concomitant]

REACTIONS (1)
  - Hepatic function abnormal [Unknown]
